FAERS Safety Report 12158822 (Version 1)
Quarter: 2016Q1

REPORT INFORMATION
  Report Type: Spontaneous
  Country: US (occurrence: US)
  Receive Date: 20160308
  Receipt Date: 20160308
  Transmission Date: 20160526
  Serious: No
  Sender: FDA-Public Use
  Company Number: US-JNJFOC-20160200162

PATIENT

DRUGS (3)
  1. INFANTS TYLENOL [Suspect]
     Active Substance: ACETAMINOPHEN
     Indication: HEADACHE
     Dosage: 2 FL OZ 160MG PER 5ML GRAPE FLAVOR
     Route: 065
  2. INFANTS TYLENOL [Suspect]
     Active Substance: ACETAMINOPHEN
     Indication: POSTOPERATIVE CARE
     Dosage: 2 FL OZ 160MG PER 5ML GRAPE FLAVOR
     Route: 065
  3. INFANTS TYLENOL [Suspect]
     Active Substance: ACETAMINOPHEN
     Indication: INJECTION
     Dosage: 2 FL OZ 160MG PER 5ML GRAPE FLAVOR
     Route: 065

REACTIONS (3)
  - Product container issue [Unknown]
  - Off label use [Unknown]
  - Product use issue [Unknown]
